FAERS Safety Report 6532234-4 (Version None)
Quarter: 2010Q1

REPORT INFORMATION
  Report Type: 
  Country: None (occurrence: None)
  Receive Date: 20100108
  Receipt Date: 20091230
  Transmission Date: 20100710
  Serious: Yes (Other)
  Sender: FDA-Public Use
  Company Number: PHHY2009DE60108

PATIENT
  Age: 62 Year
  Sex: Male

DRUGS (7)
  1. DIOVAN HCT [Suspect]
     Indication: HYPERTENSION
     Dosage: 160/12.5 MG, UNK
     Dates: start: 20010101, end: 20080101
  2. DIOVAN HCT [Suspect]
     Dosage: 1 DF, QD
     Dates: start: 20081229, end: 20091101
  3. DIOVAN [Suspect]
     Indication: HYPERTENSION
     Dosage: 2 DF, QD
     Dates: start: 20081229, end: 20091101
  4. CONCOR [Concomitant]
     Indication: HYPERTENSION
  5. VENLAFAXINE HCL [Concomitant]
     Indication: DEPRESSION
     Dosage: 150 MG, UNK
  6. CATAPRESAN [Concomitant]
     Dosage: 0.25 DF, TID
     Dates: start: 20081229
  7. BISOPROLOL [Concomitant]
     Dosage: 1 DF, QD
     Dates: start: 20081229

REACTIONS (17)
  - BLOOD PRESSURE INADEQUATELY CONTROLLED [None]
  - CARDIOVASCULAR DISORDER [None]
  - DEPRESSION [None]
  - DIZZINESS [None]
  - DRUG DOSE OMISSION [None]
  - DRY MOUTH [None]
  - HEADACHE [None]
  - HYPOAESTHESIA [None]
  - ILLUSION [None]
  - INTRAOCULAR PRESSURE TEST ABNORMAL [None]
  - MALAISE [None]
  - MENTAL IMPAIRMENT [None]
  - MUSCLE SPASMS [None]
  - NAUSEA [None]
  - SLEEP DISORDER [None]
  - TINNITUS [None]
  - VISUAL IMPAIRMENT [None]
